FAERS Safety Report 5570575-8 (Version None)
Quarter: 2007Q4

REPORT INFORMATION
  Report Type: 
  Country: None (occurrence: None)
  Receive Date: 20071219
  Receipt Date: 20071213
  Transmission Date: 20080405
  Serious: Yes (Death, Other)
  Sender: FDA-Public Use
  Company Number: 163-21880-07111167

PATIENT
  Age: 56 Year
  Sex: Male

DRUGS (1)
  1. REVLIMID [Suspect]
     Indication: MULTIPLE MYELOMA
     Dosage: 25 MG, DAILY X 3 WEEKS ON, 1 WK OFF, ORAL
     Route: 048
     Dates: start: 20071022, end: 20071105

REACTIONS (4)
  - LOBAR PNEUMONIA [None]
  - PNEUMONIA MORAXELLA [None]
  - RENAL FAILURE ACUTE [None]
  - SEPSIS [None]
